FAERS Safety Report 4571102-4 (Version None)
Quarter: 2005Q1

REPORT INFORMATION
  Report Type: 
  Country: None (occurrence: None)
  Receive Date: 20050202
  Receipt Date: 20050117
  Transmission Date: 20050727
  Serious: Yes (Hospitalization)
  Sender: FDA-Public Use
  Company Number: DSA_25458_2004

PATIENT
  Age: 76 Year
  Sex: Female

DRUGS (2)
  1. TEVETEN [Suspect]
     Indication: HYPERTENSION
     Dosage: 600 MG Q DAY PO
     Route: 048
     Dates: start: 20040525, end: 20040625
  2. TORSEMIDE [Concomitant]

REACTIONS (1)
  - LEFT VENTRICULAR FAILURE [None]
